FAERS Safety Report 8377815-0 (Version None)
Quarter: 2012Q2

REPORT INFORMATION
  Report Type: 
  Country: None (occurrence: None)
  Receive Date: 20120521
  Receipt Date: 20120511
  Transmission Date: 20120825
  Serious: Yes (Life-Threatening, Hospitalization, Other)
  Sender: FDA-Public Use
  Company Number: CL-410-2012

PATIENT
  Age: 23 Year
  Sex: Male

DRUGS (2)
  1. METRONIDAZOLE [Suspect]
     Indication: PERICORONITIS
     Dosage: 250MG TID
  2. AMOXICILLIN [Suspect]
     Indication: PERICORONITIS
     Dosage: 200MG TID

REACTIONS (1)
  - ANAPHYLACTIC SHOCK [None]
